FAERS Safety Report 5980436-8 (Version None)
Quarter: 2008Q4

REPORT INFORMATION
  Report Type: 
  Country: None (occurrence: None)
  Receive Date: 20081205
  Receipt Date: 20071205
  Transmission Date: 20090506
  Serious: No
  Sender: FDA-Public Use
  Company Number: A0697460A

PATIENT
  Age: 63 Year
  Sex: Male

DRUGS (2)
  1. COMMIT [Suspect]
     Dates: start: 20070912, end: 20070912
  2. NICODERM CQ [Suspect]

REACTIONS (5)
  - BLOOD PRESSURE INCREASED [None]
  - COLD SWEAT [None]
  - DIZZINESS [None]
  - MALAISE [None]
  - NAUSEA [None]
